FAERS Safety Report 5499922-2 (Version None)
Quarter: 2007Q4

REPORT INFORMATION
  Report Type: 
  Country: None (occurrence: None)
  Receive Date: 20071026
  Receipt Date: 20071018
  Transmission Date: 20080405
  Serious: Yes (Other)
  Sender: FDA-Public Use
  Company Number: US-PFIZER INC-2007087856

PATIENT
  Sex: Female
  Weight: 91 kg

DRUGS (6)
  1. GEODON [Suspect]
     Indication: AGITATION
     Route: 030
  2. METHYLPREDNISOLONE [Concomitant]
     Indication: DYSPNOEA
  3. ALL OTHER THERAPEUTIC PRODUCTS [Concomitant]
  4. NORVASC [Concomitant]
     Indication: HYPERTENSION
  5. ATIVAN [Concomitant]
     Indication: AGITATION
  6. ANTIBIOTICS [Concomitant]

REACTIONS (3)
  - CARDIAC ENZYMES INCREASED [None]
  - INCORRECT ROUTE OF DRUG ADMINISTRATION [None]
  - MYOCARDIAL INFARCTION [None]
